FAERS Safety Report 13468646 (Version 1)
Quarter: 2017Q2

REPORT INFORMATION
  Report Type: Spontaneous
  Country: BR (occurrence: BR)
  Receive Date: 20170421
  Receipt Date: 20170421
  Transmission Date: 20170830
  Serious: Yes (Death, Hospitalization, Other)
  Sender: FDA-Public Use
  Company Number: BR-GILEAD-2017-0268466

PATIENT
  Age: 42 Year
  Sex: Male
  Weight: 105 kg

DRUGS (8)
  1. FUROSEMIDE. [Concomitant]
     Active Substance: FUROSEMIDE
  2. DOMPERIDONE [Concomitant]
     Active Substance: DOMPERIDONE
  3. DAKLINZA [Concomitant]
     Active Substance: DACLATASVIR
     Dosage: UNK
     Dates: start: 20160621, end: 20160912
  4. SPIRONOLACTONE. [Concomitant]
     Active Substance: SPIRONOLACTONE
  5. RIBAVIRIN FPO [Concomitant]
     Dosage: UNK
     Dates: start: 20160621, end: 20160912
  6. NORFLOXACIN [Concomitant]
     Active Substance: NORFLOXACIN
  7. SOVALDI [Suspect]
     Active Substance: SOFOSBUVIR
     Indication: HEPATITIS C
     Dosage: 400 MG, UNK
     Route: 065
     Dates: start: 20160621, end: 20160912
  8. OMEPRAZOLE. [Concomitant]
     Active Substance: OMEPRAZOLE
     Dosage: UNK

REACTIONS (10)
  - Urinary tract infection [Recovered/Resolved]
  - Abdominal pain [Unknown]
  - Encephalopathy [Fatal]
  - Loss of consciousness [Fatal]
  - Pneumonia bacterial [Fatal]
  - Pyrexia [Unknown]
  - Constipation [Unknown]
  - Brain oedema [Fatal]
  - Decreased appetite [Unknown]
  - General physical health deterioration [Fatal]

NARRATIVE: CASE EVENT DATE: 20161111
